FAERS Safety Report 4656812-2 (Version None)
Quarter: 2005Q2

REPORT INFORMATION
  Report Type: 
  Country: None (occurrence: None)
  Receive Date: 20050505
  Receipt Date: 20050428
  Transmission Date: 20051028
  Serious: Yes (Life-Threatening)
  Sender: FDA-Public Use
  Company Number: 2005CG00839

PATIENT
  Age: 32 Year
  Sex: Female

DRUGS (4)
  1. NAROPIN [Suspect]
     Indication: POSTOPERATIVE ANALGESIA
     Dosage: 5 ML IF
     Dates: start: 20050401, end: 20050401
  2. DIPRIVAN [Concomitant]
  3. SUFENTA [Concomitant]
  4. SEVORANE [Concomitant]

REACTIONS (3)
  - BLOOD PRESSURE DECREASED [None]
  - CYANOSIS [None]
  - OXYGEN SATURATION DECREASED [None]
